FAERS Safety Report 19504588 (Version 24)
Quarter: 2025Q1

REPORT INFORMATION
  Report Type: Report from Study
  Country: CA (occurrence: CA)
  Receive Date: 20210708
  Receipt Date: 20250203
  Transmission Date: 20250409
  Serious: Yes (Other)
  Sender: ROCHE
  Company Number: CA-ROCHE-2489028

PATIENT
  Age: 10 Year
  Sex: Male
  Weight: 44 kg

DRUGS (41)
  1. ACTEMRA [Suspect]
     Active Substance: TOCILIZUMAB
     Indication: Transplant rejection
     Route: 040
     Dates: start: 20190927, end: 20200924
  2. ACTEMRA [Suspect]
     Active Substance: TOCILIZUMAB
     Indication: Kidney transplant rejection
     Route: 040
     Dates: start: 20210204, end: 20220114
  3. ACTEMRA [Suspect]
     Active Substance: TOCILIZUMAB
     Route: 040
     Dates: start: 20220114, end: 20220311
  4. ACTEMRA [Suspect]
     Active Substance: TOCILIZUMAB
     Route: 040
     Dates: start: 20220408, end: 20230421
  5. ACTEMRA [Suspect]
     Active Substance: TOCILIZUMAB
     Route: 040
     Dates: start: 20230519, end: 20231006
  6. ACTEMRA [Suspect]
     Active Substance: TOCILIZUMAB
     Route: 040
     Dates: start: 20231102, end: 20240419
  7. ACTEMRA [Suspect]
     Active Substance: TOCILIZUMAB
     Route: 040
  8. ACTEMRA [Suspect]
     Active Substance: TOCILIZUMAB
     Route: 040
  9. ACTEMRA [Suspect]
     Active Substance: TOCILIZUMAB
     Route: 040
  10. ACTEMRA [Suspect]
     Active Substance: TOCILIZUMAB
     Route: 040
  11. ACTEMRA [Suspect]
     Active Substance: TOCILIZUMAB
     Route: 040
  12. ACTEMRA [Suspect]
     Active Substance: TOCILIZUMAB
     Route: 040
  13. ACTEMRA [Suspect]
     Active Substance: TOCILIZUMAB
     Route: 040
  14. ACTEMRA [Suspect]
     Active Substance: TOCILIZUMAB
     Route: 040
  15. ACTEMRA [Suspect]
     Active Substance: TOCILIZUMAB
     Route: 040
  16. ACTEMRA [Suspect]
     Active Substance: TOCILIZUMAB
     Route: 040
  17. ACTEMRA [Suspect]
     Active Substance: TOCILIZUMAB
     Route: 040
  18. ACTEMRA [Suspect]
     Active Substance: TOCILIZUMAB
     Route: 040
  19. ACTEMRA [Suspect]
     Active Substance: TOCILIZUMAB
     Route: 040
  20. ACTEMRA [Suspect]
     Active Substance: TOCILIZUMAB
     Route: 040
  21. ACTEMRA [Suspect]
     Active Substance: TOCILIZUMAB
     Route: 040
  22. ACTEMRA [Suspect]
     Active Substance: TOCILIZUMAB
     Route: 040
  23. ACTEMRA [Suspect]
     Active Substance: TOCILIZUMAB
     Route: 040
  24. ACTEMRA [Suspect]
     Active Substance: TOCILIZUMAB
     Route: 040
  25. ACTEMRA [Suspect]
     Active Substance: TOCILIZUMAB
     Route: 040
  26. ACTEMRA [Suspect]
     Active Substance: TOCILIZUMAB
     Route: 040
     Dates: start: 20240517
  27. ACTEMRA [Suspect]
     Active Substance: TOCILIZUMAB
     Route: 040
  28. TACROLIMUS [Suspect]
     Active Substance: TACROLIMUS
     Indication: Product used for unknown indication
     Route: 065
  29. FOSINOPRIL [Concomitant]
     Active Substance: FOSINOPRIL
     Indication: Hypertension
  30. CELLCEPT [Concomitant]
     Active Substance: MYCOPHENOLATE MOFETIL
     Indication: Product used for unknown indication
     Route: 065
  31. IRON [Concomitant]
     Active Substance: IRON
  32. MELATONIN [Concomitant]
     Active Substance: MELATONIN
  33. PREDNISONE [Concomitant]
     Active Substance: PREDNISONE
  34. METHYLPREDNISOLONE [Concomitant]
     Active Substance: METHYLPREDNISOLONE
     Indication: Transplant rejection
  35. SEPTRA [Concomitant]
     Active Substance: SULFAMETHOXAZOLE\TRIMETHOPRIM
  36. SODIUM CHLORIDE [Concomitant]
     Active Substance: SODIUM CHLORIDE
  37. TACROLIMUS [Concomitant]
     Active Substance: TACROLIMUS
  38. THYMOGLOBULIN [Concomitant]
     Active Substance: LAPINE T-LYMPHOCYTE IMMUNE GLOBULIN
     Indication: Transplant rejection
  39. TACROLIMUS [Concomitant]
     Active Substance: TACROLIMUS
     Dosage: ONGOING
  40. FERROUS SULFATE [Concomitant]
     Active Substance: FERROUS SULFATE
  41. CORTISONE [Concomitant]
     Active Substance: CORTISONE
     Indication: Blood creatinine increased

REACTIONS (31)
  - Neutropenia [Unknown]
  - Neoplasm [Unknown]
  - Glomerulonephritis [Unknown]
  - Tubulointerstitial nephritis [Unknown]
  - Injury [Unknown]
  - Leukopenia [Recovered/Resolved]
  - Blood creatinine increased [Recovered/Resolved]
  - Heart rate increased [Unknown]
  - Blood pressure systolic decreased [Unknown]
  - Respiratory rate increased [Unknown]
  - Blood pressure diastolic decreased [Unknown]
  - Nasal congestion [Recovered/Resolved]
  - Cough [Recovered/Resolved]
  - Headache [Recovered/Resolved]
  - Nausea [Recovered/Resolved]
  - Blood pressure diastolic abnormal [Unknown]
  - Hypertension [Recovered/Resolved]
  - Influenza [Recovered/Resolved]
  - Hypotension [Unknown]
  - Blood phosphorus increased [Unknown]
  - Erythema [Recovered/Resolved]
  - Nasopharyngitis [Unknown]
  - Heart rate irregular [Unknown]
  - Off label use [Unknown]
  - White blood cell count decreased [Recovered/Resolved]
  - Capillaritis [Unknown]
  - Vessel puncture site pain [Recovered/Resolved]
  - Skin papilloma [Unknown]
  - Mouth ulceration [Unknown]
  - Weight increased [Unknown]
  - Weight decreased [Unknown]

NARRATIVE: CASE EVENT DATE: 20191122
